FAERS Safety Report 5755347-3 (Version None)
Quarter: 2008Q2

REPORT INFORMATION
  Report Type: 
  Country: None (occurrence: None)
  Receive Date: 20080529
  Receipt Date: 20080529
  Transmission Date: 20081010
  Serious: Yes (Hospitalization)
  Sender: FDA-Public Use
  Company Number: None

PATIENT
  Age: 41 Year
  Sex: Female
  Weight: 97.977 kg

DRUGS (1)
  1. SINGULAIR [Suspect]
     Indication: HYPERSENSITIVITY
     Dosage: 1 TABLET ONCE A DAY PO
     Route: 048
     Dates: start: 20080429, end: 20080506

REACTIONS (3)
  - HEART RATE INCREASED [None]
  - MALAISE [None]
  - UPPER RESPIRATORY TRACT INFECTION [None]
